FAERS Safety Report 6729737-6 (Version None)
Quarter: 2010Q2

REPORT INFORMATION
  Report Type: 
  Country: None (occurrence: None)
  Receive Date: 20100513
  Receipt Date: 20100511
  Transmission Date: 20101027
  Serious: Yes (Death, Hospitalization, Other)
  Sender: FDA-Public Use
  Company Number: 2007SP017684

PATIENT
  Age: 41 Year
  Sex: Female
  Weight: 56 kg

DRUGS (14)
  1. TEMODAL [Suspect]
     Indication: GLIOBLASTOMA MULTIFORME
     Dosage: 150 MG/M2;QD;PO, 200 MG/M2;QD;PO, 200 MG/M2;QD;PO, 200 MG/M2;QD;PO, 200 MG/M2;QD;PO, 200 MG/M2;QD;PO
     Route: 048
     Dates: start: 20061121, end: 20061125
  2. TEMODAL [Suspect]
     Indication: GLIOBLASTOMA MULTIFORME
     Dosage: 150 MG/M2;QD;PO, 200 MG/M2;QD;PO, 200 MG/M2;QD;PO, 200 MG/M2;QD;PO, 200 MG/M2;QD;PO, 200 MG/M2;QD;PO
     Route: 048
     Dates: start: 20061219, end: 20061223
  3. TEMODAL [Suspect]
     Indication: GLIOBLASTOMA MULTIFORME
     Dosage: 150 MG/M2;QD;PO, 200 MG/M2;QD;PO, 200 MG/M2;QD;PO, 200 MG/M2;QD;PO, 200 MG/M2;QD;PO, 200 MG/M2;QD;PO
     Route: 048
     Dates: start: 20070116, end: 20070120
  4. TEMODAL [Suspect]
     Indication: GLIOBLASTOMA MULTIFORME
     Dosage: 150 MG/M2;QD;PO, 200 MG/M2;QD;PO, 200 MG/M2;QD;PO, 200 MG/M2;QD;PO, 200 MG/M2;QD;PO, 200 MG/M2;QD;PO
     Route: 048
     Dates: start: 20070213, end: 20070217
  5. TEMODAL [Suspect]
     Indication: GLIOBLASTOMA MULTIFORME
     Dosage: 150 MG/M2;QD;PO, 200 MG/M2;QD;PO, 200 MG/M2;QD;PO, 200 MG/M2;QD;PO, 200 MG/M2;QD;PO, 200 MG/M2;QD;PO
     Route: 048
     Dates: start: 20070313, end: 20070317
  6. TEMODAL [Suspect]
     Indication: GLIOBLASTOMA MULTIFORME
     Dosage: 150 MG/M2;QD;PO, 200 MG/M2;QD;PO, 200 MG/M2;QD;PO, 200 MG/M2;QD;PO, 200 MG/M2;QD;PO, 200 MG/M2;QD;PO
     Route: 048
     Dates: start: 20070410, end: 20070414
  7. COTRIM [Concomitant]
  8. MYSTAN [Concomitant]
  9. DEPAKENE [Concomitant]
  10. PREDONINE [Concomitant]
  11. TEGRETOL [Concomitant]
  12. TAKEPRON [Concomitant]
  13. MAGLAX [Concomitant]
  14. PURSENNID [Concomitant]

REACTIONS (2)
  - HEPATITIS B [None]
  - LYMPHOCYTE COUNT DECREASED [None]
